APPROVED DRUG PRODUCT: LEUCOVORIN CALCIUM
Active Ingredient: LEUCOVORIN CALCIUM
Strength: EQ 10MG BASE
Dosage Form/Route: TABLET;ORAL
Application: A071962 | Product #001
Applicant: XANODYNE PHARMACEUTICS INC
Approved: Nov 19, 1987 | RLD: No | RS: No | Type: DISCN